FAERS Safety Report 17115954 (Version 2)
Quarter: 2019Q4

REPORT INFORMATION
  Report Type: Spontaneous
  Country: US (occurrence: US)
  Receive Date: 20191205
  Receipt Date: 20191210
  Transmission Date: 20200122
  Serious: No
  Sender: FDA-Public Use
  Company Number: US-PFIZER INC-2019524043

PATIENT
  Age: 74 Year
  Sex: Female

DRUGS (3)
  1. OMEPRAZOLE. [Concomitant]
     Active Substance: OMEPRAZOLE
     Dosage: UNK
  2. PREMARIN [Suspect]
     Active Substance: ESTROGENS, CONJUGATED
     Indication: PROPHYLAXIS URINARY TRACT INFECTION
     Dosage: UNK
     Dates: start: 20191005
  3. METHENAMINE [Suspect]
     Active Substance: METHENAMINE
     Indication: CYSTITIS INTERSTITIAL
     Dosage: UNK

REACTIONS (6)
  - Dizziness [Unknown]
  - Urticaria [Not Recovered/Not Resolved]
  - Product use in unapproved indication [Unknown]
  - Malaise [Unknown]
  - Balance disorder [Unknown]
  - Off label use [Unknown]
